FAERS Safety Report 9603799 (Version 1)
Quarter: 2013Q4

REPORT INFORMATION
  Report Type: Spontaneous
  Country: US (occurrence: US)
  Receive Date: 20131008
  Receipt Date: 20131008
  Transmission Date: 20140711
  Serious: Yes (Other)
  Sender: FDA-Public Use
  Company Number: PHHY2013US109377

PATIENT
  Age: 56 Year
  Sex: Female

DRUGS (3)
  1. HYDROCHLOROTHIAZIDE [Suspect]
     Indication: HYPERCALCIURIA
     Dosage: 12.5 MG, DAILY
  2. CALCIUM [Concomitant]
  3. VITAMIN D [Concomitant]

REACTIONS (3)
  - Mycosis fungoides [Unknown]
  - Skin lesion [Unknown]
  - Rash erythematous [Recovering/Resolving]
